FAERS Safety Report 9507526 (Version 1)
Quarter: 2013Q3

REPORT INFORMATION
  Report Type: Report from Study
  Country: FR (occurrence: FR)
  Receive Date: 20130909
  Receipt Date: 20130909
  Transmission Date: 20140515
  Serious: Yes (Hospitalization)
  Sender: FDA-Public Use
  Company Number: FR-ASTELLAS-2013US009329

PATIENT
  Age: 59 Year
  Sex: Male

DRUGS (18)
  1. ERLOTINIB TABLET [Suspect]
     Indication: PANCREATIC CARCINOMA
     Dosage: 100 MG, UNKNOWN/D
     Route: 048
     Dates: start: 20120510
  2. TRASTUZUMAB [Suspect]
     Indication: PANCREATIC CARCINOMA
     Dosage: 150 MG, UNKNOWN/D
     Route: 042
     Dates: start: 20120509
  3. GEMCITABINE [Suspect]
     Indication: PANCREATIC CARCINOMA
     Dosage: 1870 MG, UNKNOWN/D
     Route: 042
     Dates: start: 20120509
  4. SPECTACILLIN [Concomitant]
     Indication: DIARRHOEA
     Dosage: UNK
     Route: 048
     Dates: start: 20120607
  5. DEXERYL                            /00557601/ [Concomitant]
     Indication: RASH
     Dosage: UNK
     Route: 061
     Dates: start: 20120510
  6. DEXERYL                            /00557601/ [Concomitant]
     Indication: ACNE
  7. DOXYCYCLINE [Concomitant]
     Indication: RASH
     Dosage: UNK
     Route: 048
     Dates: start: 20120531
  8. DOXYCYCLINE [Concomitant]
     Indication: ACNE
  9. SOLUPRED                           /00016201/ [Concomitant]
     Indication: ASTHENIA
     Dosage: UNK
     Route: 048
     Dates: start: 20120621
  10. MEGACE [Concomitant]
     Indication: ASTHENIA
     Dosage: UNK
     Route: 048
     Dates: start: 20120621
  11. DONORMYL                           /00334102/ [Concomitant]
     Indication: INSOMNIA
     Dosage: UNK
     Route: 048
     Dates: start: 20120614
  12. JANUVIA [Concomitant]
     Indication: DIABETES MELLITUS
     Dosage: UNK
     Route: 048
     Dates: start: 2010
  13. PERMIXON [Concomitant]
     Indication: BENIGN PROSTATIC HYPERPLASIA
     Dosage: UNK
     Route: 065
     Dates: start: 2010
  14. BIPERIDYS [Concomitant]
     Indication: ABDOMINAL DISTENSION
     Dosage: UNK
     Route: 048
     Dates: start: 20120425
  15. SPASFON /00765801/ [Concomitant]
     Indication: PAIN
     Dosage: UNK
     Route: 048
     Dates: start: 20120308
  16. DOLIPRANE [Concomitant]
     Indication: PAIN
     Dosage: UNK
     Route: 048
     Dates: start: 20120308
  17. ARANESP [Concomitant]
     Indication: ANAEMIA
     Dosage: UNK
     Route: 042
     Dates: start: 20120621
  18. SPIROCTAN [Concomitant]
     Indication: OEDEMA
     Dosage: UNK
     Route: 048
     Dates: start: 20120618

REACTIONS (4)
  - Neuralgia [Recovered/Resolved]
  - Diabetes mellitus [Unknown]
  - Oedema peripheral [Recovered/Resolved]
  - Pain [Recovered/Resolved]
